FAERS Safety Report 22083981 (Version 2)
Quarter: 2023Q2

REPORT INFORMATION
  Report Type: Spontaneous
  Country: US (occurrence: US)
  Receive Date: 20230310
  Receipt Date: 20230606
  Transmission Date: 20230721
  Serious: No
  Sender: FDA-Public Use
  Company Number: US-ELI_LILLY_AND_COMPANY-US202303004658

PATIENT
  Age: 31 Year
  Sex: Female

DRUGS (1)
  1. MOUNJARO [Suspect]
     Active Substance: TIRZEPATIDE
     Indication: Product used for unknown indication
     Route: 058

REACTIONS (2)
  - Incorrect dose administered [Unknown]
  - Injection site pain [Unknown]

NARRATIVE: CASE EVENT DATE: 20230308
